FAERS Safety Report 12698674 (Version 1)
Quarter: 2016Q3

REPORT INFORMATION
  Report Type: Spontaneous
  Country: US (occurrence: US)
  Receive Date: 20160830
  Receipt Date: 20160830
  Transmission Date: 20161109
  Serious: No
  Sender: FDA-Public Use
  Company Number: US-PERRIGO-16US015593

PATIENT
  Age: 53 Year
  Sex: Female

DRUGS (3)
  1. EVAMIST [Suspect]
     Active Substance: ESTRADIOL
     Dosage: 1.53 TO 3.06 MG, QD
     Route: 062
     Dates: start: 2016
  2. EVAMIST [Suspect]
     Active Substance: ESTRADIOL
     Indication: HOT FLUSH
     Dosage: 1.53 MG, QD
     Route: 062
     Dates: start: 2015, end: 201602
  3. EVAMIST [Suspect]
     Active Substance: ESTRADIOL
     Dosage: 1.53 MG, QD
     Route: 062
     Dates: start: 2016, end: 2016

REACTIONS (1)
  - Headache [Not Recovered/Not Resolved]

NARRATIVE: CASE EVENT DATE: 2015
